FAERS Safety Report 24933054 (Version 1)
Quarter: 2025Q1

REPORT INFORMATION
  Report Type: Spontaneous
  Country: US (occurrence: US)
  Receive Date: 20250206
  Receipt Date: 20250206
  Transmission Date: 20250408
  Serious: No
  Sender: TARO
  Company Number: US-TARO PHARMACEUTICALS USA INC.-2024TAR02440

PATIENT

DRUGS (2)
  1. ADAPALENE [Suspect]
     Active Substance: ADAPALENE
     Indication: Acne
     Dosage: UNK, OD AT NIGHT, DIME SIZE
     Route: 061
     Dates: start: 202404
  2. ADAPALENE [Suspect]
     Active Substance: ADAPALENE
     Indication: Scar

REACTIONS (2)
  - Drug ineffective [Unknown]
  - Disease recurrence [Unknown]
